FAERS Safety Report 10647839 (Version 1)
Quarter: 2014Q4

REPORT INFORMATION
  Report Type: Spontaneous
  Country: US (occurrence: US)
  Receive Date: 20141212
  Receipt Date: 20141212
  Transmission Date: 20150529
  Serious: No
  Sender: FDA-Public Use
  Company Number: US-009507513-1412USA002077

PATIENT
  Age: 30 Year
  Sex: Female
  Weight: 86.17 kg

DRUGS (2)
  1. IMPLANON [Suspect]
     Active Substance: ETONOGESTREL
     Indication: CONTRACEPTION
     Dosage: EVERY 3 YEARS
     Route: 059
     Dates: start: 20110829
  2. METFORMIN [Concomitant]
     Active Substance: METFORMIN HYDROCHLORIDE
     Dosage: UNK

REACTIONS (8)
  - Implant site pain [Unknown]
  - Menstrual disorder [Unknown]
  - Hypomenorrhoea [Unknown]
  - Incorrect drug administration duration [Unknown]
  - Dysmenorrhoea [Unknown]
  - Headache [Unknown]
  - Abdominal pain upper [Unknown]
  - Implant site erythema [Unknown]

NARRATIVE: CASE EVENT DATE: 20140829
